FAERS Safety Report 5127230-8 (Version None)
Quarter: 2006Q4

REPORT INFORMATION
  Report Type: 
  Country: None (occurrence: None)
  Receive Date: 20061013
  Receipt Date: 20060929
  Transmission Date: 20070319
  Serious: Yes (Death)
  Sender: FDA-Public Use
  Company Number: GB-GILEAD-2006-0010418

PATIENT

DRUGS (1)
  1. DAUNOXOME [Suspect]
     Indication: NEOPLASM
     Route: 042

REACTIONS (4)
  - CARDIAC FAILURE [None]
  - CARDIAC FUNCTION TEST ABNORMAL [None]
  - CARDIOTOXICITY [None]
  - EJECTION FRACTION DECREASED [None]
